FAERS Safety Report 4571645-3 (Version None)
Quarter: 2005Q1

REPORT INFORMATION
  Report Type: 
  Country: None (occurrence: None)
  Receive Date: 20050207
  Receipt Date: 20050127
  Transmission Date: 20050727
  Serious: Yes (Hospitalization)
  Sender: FDA-Public Use
  Company Number: CH-BRISTOL-MYERS SQUIBB COMPANY-12845780

PATIENT
  Age: 36 Year
  Sex: Female

DRUGS (2)
  1. ENDOXAN [Suspect]
     Indication: BREAST CANCER
  2. ADRIBLASTIN [Suspect]
     Indication: BREAST CANCER

REACTIONS (1)
  - PALMAR-PLANTAR ERYTHRODYSAESTHESIA SYNDROME [None]
